FAERS Safety Report 8641341 (Version 2)
Quarter: 2013Q2

REPORT INFORMATION
  Report Type: Spontaneous
  Country: AR (occurrence: AR)
  Receive Date: 20120628
  Receipt Date: 20130401
  Transmission Date: 20140414
  Serious: Yes (Other)
  Sender: FDA-Public Use
  Company Number: AR-ROCHE-1082048

PATIENT
  Sex: Female

DRUGS (5)
  1. XOLAIR [Suspect]
     Indication: ASTHMA
     Route: 065
     Dates: start: 201203
  2. XOLAIR [Suspect]
     Indication: HYPERSENSITIVITY
     Route: 065
  3. XOLAIR [Suspect]
     Route: 065
  4. XOLAIR [Suspect]
     Route: 065
     Dates: start: 2012, end: 2012
  5. CORTISONE [Concomitant]

REACTIONS (5)
  - Bone infarction [Recovering/Resolving]
  - Bronchitis [Not Recovered/Not Resolved]
  - Asthma [Not Recovered/Not Resolved]
  - Hypersensitivity [Not Recovered/Not Resolved]
  - Malaise [Unknown]
